FAERS Safety Report 5258522-X (Version None)
Quarter: 2007Q1

REPORT INFORMATION
  Report Type: 
  Country: None (occurrence: None)
  Receive Date: 20070305
  Receipt Date: 20070216
  Transmission Date: 20070707
  Serious: Yes (Other)
  Sender: FDA-Public Use
  Company Number: 2007RR-05884

PATIENT
  Age: 10 Year
  Sex: Female

DRUGS (3)
  1. IBUPROFEN [Suspect]
     Dosage: 30MG/KG/DAY
  2. ... [Concomitant]
  3. ... [Concomitant]

REACTIONS (4)
  - CHOLESTASIS [None]
  - HEPATITIS [None]
  - STEVENS-JOHNSON SYNDROME [None]
  - VANISHING BILE DUCT SYNDROME [None]
